FAERS Safety Report 10389339 (Version 1)
Quarter: 2014Q3

REPORT INFORMATION
  Report Type: Spontaneous
  Country: US (occurrence: US)
  Receive Date: 20140818
  Receipt Date: 20140818
  Transmission Date: 20150326
  Serious: No
  Sender: FDA-Public Use
  Company Number: US-TEVA-495705USA

PATIENT
  Age: 77 Year
  Sex: Female

DRUGS (1)
  1. ESZOPICLONE. [Suspect]
     Active Substance: ESZOPICLONE
     Indication: INSOMNIA
     Dates: start: 20140701

REACTIONS (5)
  - Middle insomnia [Unknown]
  - Drug ineffective [Unknown]
  - Initial insomnia [Unknown]
  - Cystitis [Unknown]
  - Incontinence [Unknown]

NARRATIVE: CASE EVENT DATE: 20140701
